FAERS Safety Report 24060538 (Version 7)
Quarter: 2024Q3

REPORT INFORMATION
  Report Type: Spontaneous
  Country: JP (occurrence: JP)
  Receive Date: 20240708
  Receipt Date: 20240830
  Transmission Date: 20241017
  Serious: Yes (Hospitalization, Other)
  Sender: PFIZER
  Company Number: JP-PFIZER INC-PV202400087844

PATIENT
  Age: 38 Year
  Sex: Female

DRUGS (3)
  1. SIROLIMUS [Suspect]
     Active Substance: SIROLIMUS
     Indication: Lymphatic malformation
     Dosage: 2 MG, DAILY, 1 D
     Route: 048
     Dates: start: 20230310, end: 20230427
  2. SIROLIMUS [Suspect]
     Active Substance: SIROLIMUS
     Indication: Chylothorax
     Dosage: 3 MG, DAILY, 1 D
     Route: 048
     Dates: start: 20230428, end: 20230518
  3. SIROLIMUS [Suspect]
     Active Substance: SIROLIMUS
     Dosage: 4 MG, DAILY, 1 D
     Route: 048
     Dates: start: 20230519, end: 20230707

REACTIONS (1)
  - Pulmonary toxicity [Recovered/Resolved]

NARRATIVE: CASE EVENT DATE: 20230707
